FAERS Safety Report 7367894-1 (Version None)
Quarter: 2011Q1

REPORT INFORMATION
  Report Type: 
  Country: None (occurrence: None)
  Receive Date: 20110322
  Receipt Date: 20110321
  Transmission Date: 20110831
  Serious: Yes (Hospitalization, Disabling, Other)
  Sender: FDA-Public Use
  Company Number: US-MERCK-1102USA01912

PATIENT
  Age: 65 Year
  Sex: Female

DRUGS (5)
  1. HYZAAR [Suspect]
     Indication: HYPERTENSION
     Route: 048
     Dates: end: 20100101
  2. NEXIUM [Concomitant]
     Route: 065
  3. HYZAAR [Suspect]
     Route: 048
     Dates: start: 20100101, end: 20100101
  4. MESTINON [Concomitant]
     Route: 065
  5. HYZAAR [Suspect]
     Route: 048
     Dates: start: 20100101

REACTIONS (3)
  - SPINAL MENINGEAL CYST [None]
  - STAPHYLOCOCCAL INFECTION [None]
  - BLOOD PRESSURE INCREASED [None]
